FAERS Safety Report 4467681-8 (Version None)
Quarter: 2004Q3

REPORT INFORMATION
  Report Type: 
  Country: None (occurrence: None)
  Receive Date: 20040929
  Receipt Date: 20040915
  Transmission Date: 20050211
  Serious: Yes (Hospitalization)
  Sender: FDA-Public Use
  Company Number: THYM-10287

PATIENT
  Age: 47 Year
  Sex: Male
  Weight: 95.2554 kg

DRUGS (5)
  1. THYMOGLOBULIN [Suspect]
     Indication: KIDNEY TRANSPLANT REJECTION
     Dosage: 100 MG IV
     Route: 042
     Dates: start: 20040914
  2. BENADRYL [Concomitant]
  3. TYLENOL [Concomitant]
  4. HEPARIN [Concomitant]
  5. HYDROCORTISONE [Concomitant]

REACTIONS (4)
  - HYPOTENSION [None]
  - INFUSION RELATED REACTION [None]
  - MEDICATION ERROR [None]
  - PYREXIA [None]
